FAERS Safety Report 9899417 (Version 1)
Quarter: 2014Q1

REPORT INFORMATION
  Report Type: Spontaneous
  Country: US (occurrence: US)
  Receive Date: 20140214
  Receipt Date: 20140214
  Transmission Date: 20141002
  Serious: Yes (Other)
  Sender: FDA-Public Use
  Company Number: 2014SP000386

PATIENT
  Age: 34 Year
  Sex: Female
  Weight: 77 kg

DRUGS (4)
  1. LATUDA [Suspect]
     Indication: DEPRESSION
     Route: 048
     Dates: start: 20140207
  2. LATUDA [Suspect]
     Indication: DEPRESSION
     Route: 048
  3. NEURONTIN [Concomitant]
  4. ZOLOFT [Concomitant]

REACTIONS (7)
  - Loss of consciousness [Not Recovered/Not Resolved]
  - Malaise [Recovered/Resolved]
  - Tremor [Not Recovered/Not Resolved]
  - Weight increased [Not Recovered/Not Resolved]
  - Vomiting [Not Recovered/Not Resolved]
  - Diarrhoea [Not Recovered/Not Resolved]
  - Off label use [Unknown]
